FAERS Safety Report 8142765-1 (Version None)
Quarter: 2012Q1

REPORT INFORMATION
  Report Type: 
  Country: None (occurrence: None)
  Receive Date: 20120216
  Receipt Date: 20120207
  Transmission Date: 20120608
  Serious: Yes (Other)
  Sender: FDA-Public Use
  Company Number: US-ASTRAZENECA-2012SE08503

PATIENT
  Age: 46 Year
  Sex: Male
  Weight: 93.4 kg

DRUGS (4)
  1. RELPAX [Suspect]
     Indication: MIGRAINE
     Route: 048
  2. IMITREX [Suspect]
     Indication: MIGRAINE
  3. ZOMIG [Suspect]
     Indication: MIGRAINE
     Route: 048
  4. MAXALT [Suspect]
     Indication: MIGRAINE

REACTIONS (4)
  - CHEST PAIN [None]
  - ADVERSE DRUG REACTION [None]
  - DRUG INEFFECTIVE [None]
  - MULTIPLE SCLEROSIS [None]
